FAERS Safety Report 9045016 (Version 1)
Quarter: 2013Q1

REPORT INFORMATION
  Report Type: Report from Study
  Country: US (occurrence: US)
  Receive Date: 20130130
  Receipt Date: 20130130
  Transmission Date: 20140127
  Serious: No
  Sender: FDA-Public Use
  Company Number: US-ABBOTT-12P-163-0965874-00

PATIENT
  Age: 71 Year
  Sex: Male

DRUGS (10)
  1. HUMIRA 40 MG/0.8 ML PEN [Suspect]
     Indication: PSORIASIS
     Dates: start: 20120521
  2. FLOMAX [Concomitant]
     Indication: PROSTATIC DISORDER
     Dosage: AM/PM
     Route: 048
  3. ATORVASTATIN [Concomitant]
     Indication: PRODUCT USED FOR UNKNOWN INDICATION
     Dosage: EVERY PM
     Route: 048
  4. LISINOPRIL [Concomitant]
     Indication: BLOOD CHOLESTEROL
     Dosage: 40MG AM EVERY DAY
     Route: 048
  5. AMLODIPINE [Concomitant]
     Indication: PRODUCT USED FOR UNKNOWN INDICATION
     Dosage: 1/2 TABLET PM DAILY
     Route: 048
  6. HCTZ [Concomitant]
     Indication: FLUID RETENTION
     Dosage: EVERY AM
     Route: 048
  7. LEVOTHYROXINE [Concomitant]
     Indication: THYROID DISORDER
     Dosage: 50MCG EVERY AM
     Route: 048
  8. LABETALOL [Concomitant]
     Indication: BLOOD CHOLESTEROL
     Dosage: 200MG EVERY AM DAILY
     Route: 048
  9. ASA [Concomitant]
     Indication: PRODUCT USED FOR UNKNOWN INDICATION
     Dosage: 325MG EVERY DAY; COATED
     Route: 048
  10. OMEPRAZOLE [Concomitant]
     Indication: PRODUCT USED FOR UNKNOWN INDICATION
     Dosage: 20MG DAILY
     Route: 048

REACTIONS (1)
  - Injection site pain [Recovered/Resolved]
